FAERS Safety Report 19416286 (Version 1)
Quarter: 2021Q2

REPORT INFORMATION
  Report Type: Spontaneous
  Country: US (occurrence: US)
  Receive Date: 20210615
  Receipt Date: 20210615
  Transmission Date: 20210717
  Serious: No
  Sender: FDA-Public Use
  Company Number: US-ALLERGAN-2106005US

PATIENT
  Sex: Female

DRUGS (1)
  1. KYBELLA [Suspect]
     Active Substance: DEOXYCHOLIC ACID
     Indication: LIPOLYSIS PROCEDURE
     Dosage: UNK UNK, SINGLE

REACTIONS (3)
  - Skin tightness [Unknown]
  - Injection site pain [Unknown]
  - Swelling [Unknown]
